FAERS Safety Report 6071091-X (Version None)
Quarter: 2009Q1

REPORT INFORMATION
  Report Type: 
  Country: None (occurrence: None)
  Receive Date: 20090209
  Receipt Date: 20081107
  Transmission Date: 20090719
  Serious: No
  Sender: FDA-Public Use
  Company Number: A0755404A

PATIENT
  Age: 56 Year
  Sex: Male

DRUGS (2)
  1. PAROXETINE HCL [Suspect]
     Dosage: 12MG PER DAY
     Route: 048
  2. TOPROL-XL [Concomitant]

REACTIONS (2)
  - ANXIETY [None]
  - DIZZINESS [None]
